FAERS Safety Report 8519738 (Version 3)
Quarter: 2012Q4

REPORT INFORMATION
  Report Type: 
  Country: TR (occurrence: TR)
  Receive Date: 20120418
  Receipt Date: 20121004
  Transmission Date: 20130627
  Serious: Yes (Death, Other)
  Sender: FDA-Public Use
  Company Number: TR-PFIZER INC-2012091899

PATIENT
  Age: 72 Year

DRUGS (1)
  1. TYGACIL [Suspect]
     Indication: PNEUMONIA

REACTIONS (3)
  - Multi-organ failure [Fatal]
  - Hepatic enzyme increased [Unknown]
  - Hepatotoxicity [Unknown]
